FAERS Safety Report 20853675 (Version 3)
Quarter: 2022Q4

REPORT INFORMATION
  Report Type: Spontaneous
  Country: US (occurrence: US)
  Receive Date: 20220520
  Receipt Date: 20221214
  Transmission Date: 20230113
  Serious: Yes (Other)
  Sender: FDA-Public Use
  Company Number: US-GILEAD-2022-0582429

PATIENT
  Sex: Male
  Weight: 81.646 kg

DRUGS (15)
  1. ATRIPLA [Suspect]
     Active Substance: EFAVIRENZ\EMTRICITABINE\TENOFOVIR DISOPROXIL FUMARATE
     Indication: HIV infection
     Dosage: UNK
     Route: 048
     Dates: start: 2006
  2. ATRIPLA [Suspect]
     Active Substance: EFAVIRENZ\EMTRICITABINE\TENOFOVIR DISOPROXIL FUMARATE
     Dosage: UNK
     Route: 048
     Dates: start: 2006, end: 2014
  3. PREZISTA [Concomitant]
     Active Substance: DARUNAVIR ETHANOLATE
  4. RETROVIR [Concomitant]
     Active Substance: ZIDOVUDINE
  5. TIVICAY [Concomitant]
     Active Substance: DOLUTEGRAVIR SODIUM
  6. AZT [Concomitant]
     Active Substance: ZIDOVUDINE
  7. DARUNAVIR [Concomitant]
     Active Substance: DARUNAVIR
  8. DOLUTEGRAVIR [Concomitant]
     Active Substance: DOLUTEGRAVIR
  9. ASPIRIN [Concomitant]
     Active Substance: ASPIRIN
  10. LOPERAMIDE [Concomitant]
     Active Substance: LOPERAMIDE
  11. ATORVASTATIN [Concomitant]
     Active Substance: ATORVASTATIN
  12. PANTOPRAZOLE [Concomitant]
     Active Substance: PANTOPRAZOLE
  13. TERAZOSIN [Concomitant]
     Active Substance: TERAZOSIN HYDROCHLORIDE
  14. CYCLOBENZAPRINE [Concomitant]
     Active Substance: CYCLOBENZAPRINE
  15. BACTRIM [Concomitant]
     Active Substance: SULFAMETHOXAZOLE\TRIMETHOPRIM

REACTIONS (15)
  - End stage renal disease [Not Recovered/Not Resolved]
  - Erectile dysfunction [Not Recovered/Not Resolved]
  - Nephrolithiasis [Unknown]
  - Nephropathy [Unknown]
  - Pain [Not Recovered/Not Resolved]
  - Emotional distress [Not Recovered/Not Resolved]
  - Anxiety [Not Recovered/Not Resolved]
  - Anhedonia [Not Recovered/Not Resolved]
  - Urinary tract infection [Unknown]
  - Renal cyst [Unknown]
  - Anaemia [Not Recovered/Not Resolved]
  - Gait disturbance [Unknown]
  - General physical health deterioration [Unknown]
  - Eating disorder [Unknown]
  - Fatigue [Unknown]

NARRATIVE: CASE EVENT DATE: 20100101
